FAERS Safety Report 14163627 (Version 1)
Quarter: 2017Q4

REPORT INFORMATION
  Report Type: Spontaneous
  Country: US (occurrence: US)
  Receive Date: 20171107
  Receipt Date: 20171107
  Transmission Date: 20180321
  Serious: Yes (Hospitalization)
  Sender: FDA-Public Use
  Company Number: US-BION-006730

PATIENT
  Age: 57 Year
  Sex: Male

DRUGS (1)
  1. IBUPROFEN. [Suspect]
     Active Substance: IBUPROFEN
     Indication: BACK PAIN
     Dosage: HIGH-DOSE IBUPROFEN

REACTIONS (6)
  - Melaena [Recovered/Resolved]
  - Incorrect dose administered [Not Recovered/Not Resolved]
  - Haematemesis [Recovered/Resolved]
  - Gastric ulcer [Recovered/Resolved]
  - Duodenitis [Recovered/Resolved]
  - Oesophagitis [Recovered/Resolved]
